FAERS Safety Report 5010257-4 (Version None)
Quarter: 2006Q2

REPORT INFORMATION
  Report Type: 
  Country: None (occurrence: None)
  Receive Date: 20060404
  Receipt Date: 20051130
  Transmission Date: 20061013
  Serious: No
  Sender: FDA-Public Use
  Company Number: US200512000296

PATIENT
  Age: 62 Year
  Sex: Female

DRUGS (6)
  1. CYMBALTA [Suspect]
     Indication: ANXIETY
     Dosage: 30 MG, ORAL
     Route: 048
     Dates: start: 20050901
  2. AVAPRO [Concomitant]
  3. MAXZIDE [Concomitant]
  4. TENORMIN /NEZ/ (ATENOLOL) [Concomitant]
  5. METFORMIN [Concomitant]
  6. STARLIX [Concomitant]

REACTIONS (8)
  - ANXIETY [None]
  - BLOOD PRESSURE INCREASED [None]
  - CHEST DISCOMFORT [None]
  - CONSTIPATION [None]
  - DIVERTICULITIS [None]
  - DIZZINESS [None]
  - NAUSEA [None]
  - PERSONALITY CHANGE [None]
